FAERS Safety Report 6697316-5 (Version None)
Quarter: 2010Q2

REPORT INFORMATION
  Report Type: 
  Country: None (occurrence: None)
  Receive Date: 20100426
  Receipt Date: 20100420
  Transmission Date: 20101027
  Serious: Yes (Other)
  Sender: FDA-Public Use
  Company Number: US-RB-000473-10

PATIENT
  Age: 58 Year
  Sex: Female

DRUGS (1)
  1. SUBOXONE [Suspect]
     Route: 060
     Dates: start: 20091001

REACTIONS (12)
  - ANXIETY [None]
  - CLUSTER HEADACHE [None]
  - COUGH [None]
  - DYSPNOEA [None]
  - FEAR [None]
  - LOSS OF CONSCIOUSNESS [None]
  - MIGRAINE [None]
  - NASOPHARYNGITIS [None]
  - NERVOUS SYSTEM DISORDER [None]
  - NERVOUSNESS [None]
  - PYREXIA [None]
  - UPPER RESPIRATORY TRACT INFECTION [None]
